FAERS Safety Report 10456278 (Version 5)
Quarter: 2015Q2

REPORT INFORMATION
  Report Type: Spontaneous
  Country: US (occurrence: None)
  Receive Date: 20140912
  Receipt Date: 20150430
  Transmission Date: 20150821
  Serious: Yes (Hospitalization)
  Sender: FDA-Public Use
  Company Number: US-H14001-14-00563

PATIENT
  Age: 85 Year
  Sex: Female
  Weight: 5.94 kg

DRUGS (5)
  1. ASPIRIN EC (ACETYLSALICYLIC ACID) [Concomitant]
  2. ABILIFY [Concomitant]
     Active Substance: ARIPIPRAZOLE
  3. DEXAMETHASONE. [Suspect]
     Active Substance: DEXAMETHASONE
     Indication: PLASMA CELL MYELOMA
     Dosage: 20 MG, WEEKLY, INTRAVENOUS (NOT OTHERWISE SPECIFIED)?
     Route: 042
     Dates: start: 20110601, end: 20121101
  4. LISINOPRIL. [Concomitant]
     Active Substance: LISINOPRIL
  5. LEVAQUIN [Concomitant]
     Active Substance: LEVOFLOXACIN

REACTIONS (8)
  - Hypophagia [None]
  - Anaemia [None]
  - Arthralgia [None]
  - Asthenia [None]
  - Confusional state [None]
  - Dehydration [None]
  - Muscular weakness [None]
  - Fall [None]

NARRATIVE: CASE EVENT DATE: 20140107
